FAERS Safety Report 23580554 (Version 2)
Quarter: 2024Q2

REPORT INFORMATION
  Report Type: Report from Study
  Country: US (occurrence: US)
  Receive Date: 20240229
  Receipt Date: 20240411
  Transmission Date: 20240715
  Serious: Yes (Life-Threatening, Hospitalization)
  Sender: FDA-Public Use
  Company Number: US-PFIZER INC-PV202400026789

PATIENT
  Age: 50 Year
  Sex: Male

DRUGS (1)
  1. TRANEXAMIC ACID [Suspect]
     Active Substance: TRANEXAMIC ACID
     Indication: Spinal anaesthesia
     Dosage: 200 MG
     Route: 037

REACTIONS (2)
  - Incorrect route of product administration [Unknown]
  - Status epilepticus [Recovered/Resolved with Sequelae]
